FAERS Safety Report 8059268-5 (Version None)
Quarter: 2012Q1

REPORT INFORMATION
  Report Type: 
  Country: None (occurrence: None)
  Receive Date: 20120113
  Receipt Date: 20120105
  Transmission Date: 20120608
  Serious: Yes (Other)
  Sender: FDA-Public Use
  Company Number: 2012IN000021

PATIENT
  Age: 67 Year

DRUGS (10)
  1. ASPIRIN [Concomitant]
  2. HYDROCHLOROTHIAZIDE/HCTZ (HYDROCHLOROTHIAZIDE) [Concomitant]
  3. MS CONTIN [Concomitant]
  4. SYNTHROID [Concomitant]
  5. METPROLOL (METPROLOL TARTRATE) [Concomitant]
  6. VICODIN [Concomitant]
  7. NIFEDIPINE [Concomitant]
  8. MIRTAZAPINE [Concomitant]
  9. CLONAZEPAM [Concomitant]
  10. JAKAFI [Suspect]
     Indication: MYELOFIBROSIS
     Dosage: 20 MG, BID, ORAL
     Route: 048
     Dates: start: 20111229

REACTIONS (2)
  - LOSS OF CONSCIOUSNESS [None]
  - FALL [None]
